FAERS Safety Report 6782078-3 (Version None)
Quarter: 2010Q2

REPORT INFORMATION
  Report Type: 
  Country: None (occurrence: None)
  Receive Date: 20100621
  Receipt Date: 20100614
  Transmission Date: 20101027
  Serious: Yes (Other)
  Sender: FDA-Public Use
  Company Number: B0661254A

PATIENT
  Age: 53 Day
  Sex: Male

DRUGS (3)
  1. ALKERAN [Suspect]
     Dosage: 5MG THREE TIMES PER WEEK
     Route: 013
     Dates: start: 20090120
  2. ALKERAN [Suspect]
     Dosage: 5MGM2 PER DAY
     Route: 013
  3. RINDERON [Concomitant]
     Dosage: 1MG THREE TIMES PER WEEK
     Route: 013
     Dates: start: 20090120

REACTIONS (3)
  - EYELID OEDEMA [None]
  - EYELID PTOSIS [None]
  - IIIRD NERVE PARESIS [None]
